FAERS Safety Report 4931683-5 (Version None)
Quarter: 2006Q1

REPORT INFORMATION
  Report Type: 
  Country: None (occurrence: None)
  Receive Date: 20060303
  Receipt Date: 20060117
  Transmission Date: 20060701
  Serious: No
  Sender: FDA-Public Use
  Company Number: US-BRISTOL-MYERS SQUIBB COMPANY-13249321

PATIENT
  Age: 54 Year
  Sex: Male
  Weight: 83 kg

DRUGS (7)
  1. ERBITUX [Suspect]
     Indication: NEOPLASM MALIGNANT
     Dosage: INITIATED 12-DEC-2005.
     Route: 042
  2. CARBOPLATIN [Suspect]
     Indication: NEOPLASM MALIGNANT
     Dosage: INITIATED ON 12-DEC-2005.
     Route: 042
  3. TAXOL [Suspect]
     Indication: NEOPLASM MALIGNANT
     Dosage: INITIATED ON 12-DEC-2005.
     Route: 042
  4. BENADRYL [Concomitant]
     Indication: PREMEDICATION
     Route: 042
  5. DECADRON SRC [Concomitant]
     Indication: PREMEDICATION
     Route: 042
  6. PEPCID [Concomitant]
     Indication: PREMEDICATION
     Route: 042
  7. ZOFRAN [Concomitant]
     Indication: PREMEDICATION
     Route: 042

REACTIONS (4)
  - DERMATITIS BULLOUS [None]
  - ERYTHEMA [None]
  - RASH MACULO-PAPULAR [None]
  - SKIN DISCOLOURATION [None]
